FAERS Safety Report 24658206 (Version 1)
Quarter: 2024Q4

REPORT INFORMATION
  Report Type: Spontaneous
  Country: US (occurrence: US)
  Receive Date: 20241125
  Receipt Date: 20241125
  Transmission Date: 20250115
  Serious: Yes (Hospitalization, Other)
  Sender: SANOFI AVENTIS
  Company Number: US-SANOFI-02306544

PATIENT
  Age: 75 Year
  Sex: Male

DRUGS (2)
  1. LANTUS SOLOSTAR [Suspect]
     Active Substance: INSULIN GLARGINE
     Indication: Type 2 diabetes mellitus
     Dosage: 30 U, QD
  2. ENTRESTO [Concomitant]
     Active Substance: SACUBITRIL\VALSARTAN
     Dosage: UNK

REACTIONS (6)
  - Myocardial infarction [Unknown]
  - Osteomyelitis [Unknown]
  - Chest injury [Unknown]
  - Cough [Unknown]
  - Protein total decreased [Unknown]
  - Memory impairment [Unknown]

NARRATIVE: CASE EVENT DATE: 20240101
